FAERS Safety Report 8599664-0 (Version None)
Quarter: 2012Q3

REPORT INFORMATION
  Report Type: 
  Country: None (occurrence: None)
  Receive Date: 20120816
  Receipt Date: 20120813
  Transmission Date: 20120928
  Serious: Yes (Hospitalization, Other)
  Sender: FDA-Public Use
  Company Number: ZA-BRACCO-000018

PATIENT
  Sex: Male

DRUGS (2)
  1. IOPAMIDOL-370 [Suspect]
     Indication: SPINAL MYELOGRAM
     Dosage: 18-20 ML IN THE SUBARCHNOID REGION
     Route: 037
     Dates: start: 20110112, end: 20110112
  2. IOPAMIDOL-370 [Suspect]
     Indication: BACK INJURY
     Dosage: 18-20 ML IN THE SUBARCHNOID REGION
     Route: 037
     Dates: start: 20110112, end: 20110112

REACTIONS (7)
  - NAUSEA [None]
  - AMNESIA [None]
  - GRAND MAL CONVULSION [None]
  - LOSS OF CONSCIOUSNESS [None]
  - HEADACHE [None]
  - OFF LABEL USE [None]
  - PRESYNCOPE [None]
